FAERS Safety Report 24869539 (Version 1)
Quarter: 2025Q1

REPORT INFORMATION
  Report Type: Spontaneous
  Country: CA (occurrence: None)
  Receive Date: 20250118
  Receipt Date: 20250118
  Transmission Date: 20250409
  Serious: Yes (Death, Life-Threatening)
  Sender: FDA-CTU
  Company Number: None

PATIENT
  Age: 36 Year
  Sex: Male
  Weight: 67.5 kg

DRUGS (1)
  1. FINASTERIDE [Suspect]
     Active Substance: FINASTERIDE
     Indication: Alopecia
     Dosage: FREQUENCY : DAILY;?
     Route: 048

REACTIONS (20)
  - Dizziness [None]
  - Brain fog [None]
  - Testicular pain [None]
  - Insomnia [None]
  - Anxiety [None]
  - Depression [None]
  - Muscle atrophy [None]
  - Penis disorder [None]
  - Genital anaesthesia [None]
  - Fatigue [None]
  - Tinnitus [None]
  - Erectile dysfunction [None]
  - Anhedonia [None]
  - Loss of libido [None]
  - Head discomfort [None]
  - Headache [None]
  - Incontinence [None]
  - Dry skin [None]
  - Arthropathy [None]
  - Completed suicide [None]

NARRATIVE: CASE EVENT DATE: 20210915
